FAERS Safety Report 21342812 (Version 2)
Quarter: 2022Q4

REPORT INFORMATION
  Report Type: Report from Study
  Country: CA (occurrence: CA)
  Receive Date: 20220916
  Receipt Date: 20221010
  Transmission Date: 20230113
  Serious: Yes (Other)
  Sender: FDA-Public Use
  Company Number: CA-GLAXOSMITHKLINE-CA2022AMR092820

PATIENT

DRUGS (3)
  1. MEPOLIZUMAB [Suspect]
     Active Substance: MEPOLIZUMAB
     Indication: Asthma
     Dosage: 100 MG,EVERY 4 WEEKS
     Route: 058
     Dates: start: 20191023
  2. MEPOLIZUMAB [Suspect]
     Active Substance: MEPOLIZUMAB
     Indication: Asthma
     Dosage: 100 MG, Z EVERY 4 WEEKS
     Route: 058
     Dates: start: 20191023
  3. MEPOLIZUMAB [Suspect]
     Active Substance: MEPOLIZUMAB
     Indication: Asthma
     Dosage: 100 MG, Z  EVERY 4 WEEKS
     Route: 058
     Dates: start: 20191023

REACTIONS (7)
  - Atrial fibrillation [Unknown]
  - Anaemia [Unknown]
  - Gastric polyps [Unknown]
  - Skin infection [Unknown]
  - Cardiac pacemaker insertion [Unknown]
  - Calculus urinary [Unknown]
  - Lung disorder [Unknown]

NARRATIVE: CASE EVENT DATE: 20220601
